FAERS Safety Report 5516547-0 (Version None)
Quarter: 2007Q4

REPORT INFORMATION
  Report Type: 
  Country: None (occurrence: None)
  Receive Date: 20071114
  Receipt Date: 20070316
  Transmission Date: 20080405
  Serious: No
  Sender: FDA-Public Use
  Company Number: A0643348A

PATIENT
  Age: 32 Year
  Sex: Female

DRUGS (1)
  1. COMMIT [Suspect]
     Dates: start: 20070308, end: 20070310

REACTIONS (4)
  - GLOSSITIS [None]
  - GLOSSODYNIA [None]
  - MOUTH INJURY [None]
  - TONGUE DISORDER [None]
